FAERS Safety Report 4547269-0 (Version None)
Quarter: 2005Q1

REPORT INFORMATION
  Report Type: 
  Country: None (occurrence: None)
  Receive Date: 20050105
  Receipt Date: 20041223
  Transmission Date: 20050727
  Serious: Yes (Life-Threatening, Hospitalization, Other)
  Sender: FDA-Public Use
  Company Number: 2004119810

PATIENT
  Age: 59 Year
  Sex: Female
  Weight: 77.1115 kg

DRUGS (11)
  1. METRONIDAZOLE [Suspect]
     Indication: ILL-DEFINED DISORDER
     Dosage: INTRAVENOUS
     Route: 042
     Dates: start: 20031003, end: 20031001
  2. MOEXIPRIL HYDROCHLORIDE [Concomitant]
  3. DIGOXIN [Concomitant]
  4. METOPROLOL [Concomitant]
  5. CLOPIDOGREL BISULFATE [Concomitant]
  6. ACETYLSALICYLIC ACID SRT [Concomitant]
  7. FUROSEMIDE [Concomitant]
  8. ATORVASTATIN [Concomitant]
  9. GLIPIZIDE [Concomitant]
  10. INSULIN [Concomitant]
  11. MIGLITOL [Concomitant]

REACTIONS (2)
  - ANAPHYLACTIC SHOCK [None]
  - MEDICATION ERROR [None]
